FAERS Safety Report 9390324 (Version 3)
Quarter: 2013Q3

REPORT INFORMATION
  Report Type: Report from Study
  Country: CA (occurrence: CA)
  Receive Date: 20130709
  Receipt Date: 20130722
  Transmission Date: 20140515
  Serious: No
  Sender: FDA-Public Use
  Company Number: CA-ROCHE-1160171

PATIENT
  Age: 77 Year
  Sex: Male

DRUGS (6)
  1. ZELBORAF [Suspect]
     Indication: METASTATIC MALIGNANT MELANOMA
     Route: 048
     Dates: start: 201211, end: 201307
  2. AVODART [Concomitant]
  3. DOXAZOSIN MESYLATE [Concomitant]
  4. HYDROXYCHLOROQUINE SULPHATE [Concomitant]
  5. ASPIRIN [Concomitant]
     Route: 048
  6. VITAMIN C [Concomitant]

REACTIONS (5)
  - Disease progression [Unknown]
  - Abdominal pain lower [Recovered/Resolved]
  - Dehydration [Recovered/Resolved]
  - Nausea [Unknown]
  - Vomiting [Unknown]
